FAERS Safety Report 7130456-5 (Version None)
Quarter: 2010Q4

REPORT INFORMATION
  Report Type: 
  Country: None (occurrence: None)
  Receive Date: 20101201
  Receipt Date: 20101123
  Transmission Date: 20110411
  Serious: No
  Sender: FDA-Public Use
  Company Number: US-JNJFOC-20101107647

PATIENT
  Sex: Female
  Weight: 90.72 kg

DRUGS (6)
  1. DURAGESIC-100 [Suspect]
     Indication: BACK PAIN
     Dosage: NDC NUMBER: 50458-0090-05
     Route: 062
  2. OXYCODONE [Concomitant]
     Indication: BREAKTHROUGH PAIN
     Dosage: 4 TIMES A DAY AS NEEDED
     Route: 048
  3. EFFEXOR [Concomitant]
     Indication: ANXIETY
     Route: 048
  4. EFFEXOR [Concomitant]
     Route: 048
  5. ABILIFY [Concomitant]
     Indication: ANXIETY
     Route: 048
  6. ALBUTEROL [Concomitant]
     Indication: ASTHMA
     Route: 055

REACTIONS (3)
  - APPLICATION SITE RASH [None]
  - PRODUCT ADHESION ISSUE [None]
  - WRONG TECHNIQUE IN DRUG USAGE PROCESS [None]
